FAERS Safety Report 9759550 (Version 1)
Quarter: 2013Q4

REPORT INFORMATION
  Report Type: Spontaneous
  Country: US (occurrence: US)
  Receive Date: 20131216
  Receipt Date: 20131216
  Transmission Date: 20140711
  Serious: No
  Sender: FDA-Public Use
  Company Number: US-GILEAD-2010-0028043

PATIENT
  Sex: Male

DRUGS (11)
  1. LETAIRIS [Suspect]
     Indication: PULMONARY ARTERIAL HYPERTENSION
     Route: 048
  2. VIAGRA [Concomitant]
  3. JANTOVEN [Concomitant]
  4. FUROSEMIDE [Concomitant]
  5. LISINOPRIL [Concomitant]
  6. DIOVAN [Concomitant]
  7. COMBIVENT [Concomitant]
  8. PREDNISONE [Concomitant]
  9. OMEPRAZOLE [Concomitant]
  10. ORELOX [Concomitant]
  11. CYCLOBENZAPRINE [Concomitant]

REACTIONS (1)
  - Rash [Not Recovered/Not Resolved]
